FAERS Safety Report 10955435 (Version 1)
Quarter: 2015Q1

REPORT INFORMATION
  Report Type: Spontaneous
  Country: US (occurrence: None)
  Receive Date: 20150324
  Receipt Date: 20150324
  Transmission Date: 20150721
  Serious: Yes (Other)
  Sender: FDA-Public Use
  Company Number: 2015COV00060

PATIENT
  Sex: Male

DRUGS (1)
  1. DIGOXIN (DIGOXIN) UNKNOWN [Suspect]
     Active Substance: DIGOXIN
     Dosage: 1X/DAY

REACTIONS (2)
  - Sinus bradycardia [None]
  - Electrocardiogram QT prolonged [None]
